FAERS Safety Report 10761673 (Version 3)
Quarter: 2015Q2

REPORT INFORMATION
  Report Type: Spontaneous
  Country: US (occurrence: US)
  Receive Date: 20150204
  Receipt Date: 20150630
  Transmission Date: 20150821
  Serious: Yes (Hospitalization, Disabling, Other)
  Sender: FDA-Public Use
  Company Number: US-009507513-1203USA02338

PATIENT
  Sex: Male

DRUGS (3)
  1. FOSAMAX [Suspect]
     Active Substance: ALENDRONATE SODIUM
     Dosage: 70 MG, QW
     Route: 048
     Dates: start: 20010907, end: 200701
  2. FOSAMAX PLUS D [Suspect]
     Active Substance: ALENDRONATE SODIUM\CHOLECALCIFEROL
     Indication: OSTEOPOROSIS
     Dosage: 70MG/2800IU, QW
     Route: 048
     Dates: start: 20050902, end: 200510
  3. FOSAMAX [Suspect]
     Active Substance: ALENDRONATE SODIUM
     Indication: OSTEOPOROSIS
     Dosage: 10 MG, QD
     Route: 048
     Dates: start: 1998, end: 200701

REACTIONS (27)
  - Intramedullary rod insertion [Unknown]
  - Aphonia [Unknown]
  - Ecchymosis [Unknown]
  - Fall [Unknown]
  - Depression [Unknown]
  - Rheumatoid arthritis [Unknown]
  - Foot fracture [Unknown]
  - Hypothyroidism [Unknown]
  - Adverse event [Unknown]
  - Hypoacusis [Unknown]
  - Anxiety [Unknown]
  - Fear [Unknown]
  - Blood cholesterol increased [Unknown]
  - Benign prostatic hyperplasia [Unknown]
  - Pain [Not Recovered/Not Resolved]
  - Erectile dysfunction [Unknown]
  - Arthralgia [Unknown]
  - Constipation [Unknown]
  - Cough [Unknown]
  - Rhinorrhoea [Unknown]
  - Adverse event [Unknown]
  - Osteoarthritis [Unknown]
  - Neuropathy peripheral [Unknown]
  - Oedema peripheral [Unknown]
  - Femur fracture [Not Recovered/Not Resolved]
  - Poor quality sleep [Unknown]
  - Nephrolithiasis [Unknown]

NARRATIVE: CASE EVENT DATE: 2000
